FAERS Safety Report 4682328-3 (Version None)
Quarter: 2005Q2

REPORT INFORMATION
  Report Type: 
  Country: None (occurrence: None)
  Receive Date: 20050606
  Receipt Date: 20050515
  Transmission Date: 20051028
  Serious: Yes (Other)
  Sender: FDA-Public Use
  Company Number: GB-BRISTOL-MYERS SQUIBB COMPANY-12971099

PATIENT
  Age: 55 Year
  Sex: Female

DRUGS (1)
  1. ADCORTYL INJ [Suspect]
     Indication: FACE LIFT

REACTIONS (2)
  - HYPERSENSITIVITY [None]
  - WHITE BLOOD CELL COUNT INCREASED [None]
